FAERS Safety Report 23034381 (Version 3)
Quarter: 2023Q4

REPORT INFORMATION
  Report Type: Spontaneous
  Country: US (occurrence: US)
  Receive Date: 20231005
  Receipt Date: 20231103
  Transmission Date: 20240109
  Serious: Yes (Death, Other)
  Sender: FDA-Public Use
  Company Number: US-SUN PHARMACEUTICAL INDUSTRIES LTD-2023R1-411020

PATIENT
  Age: 3 Year
  Sex: Female

DRUGS (1)
  1. BUPROPION [Suspect]
     Active Substance: BUPROPION
     Indication: Product used for unknown indication
     Dosage: UNK
     Route: 065

REACTIONS (5)
  - Accidental exposure to product [Fatal]
  - Bradycardia [Fatal]
  - Cardiac arrest [Fatal]
  - Generalised tonic-clonic seizure [Fatal]
  - Ventricular tachycardia [Fatal]
